FAERS Safety Report 8984264 (Version 2)
Quarter: 2013Q1

REPORT INFORMATION
  Report Type: Spontaneous
  Country: US (occurrence: US)
  Receive Date: 20121226
  Receipt Date: 20130308
  Transmission Date: 20140127
  Serious: Yes (Other)
  Sender: FDA-Public Use
  Company Number: US-JNJFOC-20121208004

PATIENT
  Age: 62 None
  Sex: Female
  Weight: 58.97 kg

DRUGS (24)
  1. REMICADE [Suspect]
     Indication: CROHN^S DISEASE
     Route: 042
     Dates: start: 20121206
  2. LOPERAMIDE HYDROCHLORIDE [Concomitant]
     Indication: DIARRHOEA
     Dosage: AS NECESSARY (PRN)
     Route: 065
  3. ALPRAZOLAM [Concomitant]
     Route: 065
  4. AMLODIPINE / BENAZEPRIL [Concomitant]
     Dosage: 5-20 MG
     Route: 065
  5. OMEPRAZOLE [Concomitant]
     Dosage: DELAYED RELEASE
     Route: 065
  6. CLONAZEPAM [Concomitant]
     Dosage: 0.5 UNIT UNSPECIFIED
     Route: 065
  7. FAMOTIDINE [Concomitant]
     Dosage: AS NECESSARY (PRN)
     Route: 065
  8. FENTANYL [Concomitant]
     Dosage: 1 PATCH/72 HOURS
     Route: 065
  9. HYDROCODONE ACETAMINOPHEN [Concomitant]
     Dosage: 7.5-200 UNIT UNSPECIFIED AS NECESSARY (PRN)
     Route: 065
  10. LEVOTHYROXINE [Concomitant]
     Dosage: 1.5 TAB PER DAY
     Route: 065
  11. MECLIZINE [Concomitant]
     Dosage: AS NECESSARY (PRN)
     Route: 065
  12. METHYLPHENIDATE [Concomitant]
     Route: 065
  13. PROMETHAZINE [Concomitant]
     Dosage: AS NECESSARY (PRN)
     Route: 048
  14. PROMETHAZINE [Concomitant]
     Dosage: AS NECESSARY (PRN)
     Route: 065
  15. SPIRIVA [Concomitant]
     Dosage: AS NECESSARY (PRN, AUTUMN)
     Route: 065
  16. VENLAFAXINE HYDROCHLORIDE [Concomitant]
     Route: 065
  17. MERCAPTOPURINE [Concomitant]
     Route: 065
  18. AZATHIOPRINE [Concomitant]
     Route: 065
  19. ASPIRIN [Concomitant]
     Route: 065
  20. CITRUCEL [Concomitant]
     Route: 065
  21. DIPHENHYDRAMINE HYDROCHLORIDEAAAAAAAAA [Concomitant]
     Dosage: AS NECESSARY (PRN)
     Route: 065
  22. MULTIVITAMINS [Concomitant]
     Route: 065
  23. VITAMIN D3 [Concomitant]
     Route: 065
  24. FOLIC ACID [Concomitant]
     Route: 065

REACTIONS (4)
  - Tooth extraction [Unknown]
  - Dyspnoea [Not Recovered/Not Resolved]
  - Diarrhoea [Not Recovered/Not Resolved]
  - Influenza like illness [Unknown]
